FAERS Safety Report 6685848-5 (Version None)
Quarter: 2010Q2

REPORT INFORMATION
  Report Type: 
  Country: None (occurrence: None)
  Receive Date: 20100415
  Receipt Date: 20100415
  Transmission Date: 20101027
  Serious: Yes (Hospitalization)
  Sender: FDA-Public Use
  Company Number: None

PATIENT
  Sex: Male
  Weight: 66.4 kg

DRUGS (3)
  1. METHOTREXATE [Suspect]
     Dosage: 825 MG
     Dates: end: 20091207
  2. PEG-L ASPARAGINASE (PEGASPARGASE, ONCOSPAR) [Suspect]
     Dosage: 4500 IU
     Dates: end: 20091118
  3. VINCRISTINE SULFATE [Suspect]
     Dosage: 6 MG
     Dates: end: 20091207

REACTIONS (6)
  - ABDOMINAL PAIN [None]
  - BODY TEMPERATURE INCREASED [None]
  - HEADACHE [None]
  - MUSCLE SPASMS [None]
  - OROPHARYNGEAL PAIN [None]
  - PHOTOSENSITIVITY REACTION [None]
